FAERS Safety Report 4465171-X (Version None)
Quarter: 2004Q3

REPORT INFORMATION
  Report Type: 
  Country: None (occurrence: None)
  Receive Date: 20040929
  Receipt Date: 20040914
  Transmission Date: 20050211
  Serious: Yes (Hospitalization)
  Sender: FDA-Public Use
  Company Number: 202795

PATIENT
  Age: 37 Year
  Sex: Male

DRUGS (2)
  1. AVONEX [Suspect]
     Indication: MULTIPLE SCLEROSIS
     Dosage: 30 MCG QW IM
     Route: 030
     Dates: start: 20040521
  2. ZOLOFT [Concomitant]

REACTIONS (4)
  - ASTHENIA [None]
  - FALL [None]
  - LIMB INJURY [None]
  - LOWER LIMB FRACTURE [None]
